FAERS Safety Report 11221701 (Version 3)
Quarter: 2015Q4

REPORT INFORMATION
  Report Type: Report from Study
  Country: ID (occurrence: ID)
  Receive Date: 20150626
  Receipt Date: 20151028
  Transmission Date: 20160304
  Serious: Yes (Death, Hospitalization, Other)
  Sender: FDA-Public Use
  Company Number: ID-BAYER-2015-360750

PATIENT
  Age: 56 Year
  Sex: Female

DRUGS (1)
  1. NEXAVAR [Suspect]
     Active Substance: SORAFENIB
     Indication: HEPATOCELLULAR CARCINOMA
     Dosage: 200 MG, BID
     Route: 048
     Dates: start: 20150525, end: 20150610

REACTIONS (8)
  - Pain of skin [None]
  - Palmar-plantar erythrodysaesthesia syndrome [None]
  - Alopecia [None]
  - Oedema peripheral [None]
  - Pain in extremity [None]
  - Hepatic encephalopathy [Fatal]
  - Face oedema [None]
  - Dry skin [None]
